FAERS Safety Report 5166113-4 (Version None)
Quarter: 2006Q4

REPORT INFORMATION
  Report Type: 
  Country: None (occurrence: None)
  Receive Date: 20061129
  Receipt Date: 20061116
  Transmission Date: 20070319
  Serious: Yes (Other)
  Sender: FDA-Public Use
  Company Number: 232806

PATIENT
  Age: 41 Year
  Sex: Male

DRUGS (2)
  1. BEVACIZUMAB (BEVACIZUMAB) PWDR + SOLVENT, INFUSION SOLN, 100 MG [Suspect]
     Indication: DRUG USE FOR UNKNOWN INDICATION
     Dosage: Q2W
  2. CHEMO ADMINISTERED REGIMEN (GENERIC COMPONENT UNKNOWN) [Concomitant]

REACTIONS (1)
  - PULMONARY HYPERTENSION [None]
